FAERS Safety Report 4773908-5 (Version None)
Quarter: 2005Q3

REPORT INFORMATION
  Report Type: 
  Country: None (occurrence: None)
  Receive Date: 20050920
  Receipt Date: 20050912
  Transmission Date: 20060218
  Serious: Yes (Death)
  Sender: FDA-Public Use
  Company Number: US-JNJFOC-20050903403

PATIENT
  Sex: Male
  Weight: 56 kg

DRUGS (7)
  1. RISPERIDONE [Suspect]
     Dosage: ^UNKNOWN DAILY^
     Route: 048
  2. RISPERIDONE [Suspect]
     Indication: SCHIZOPHRENIA
     Dosage: ^2 DOSAGE FORM DAILY^
     Route: 048
  3. BIFEPRUNOX [Suspect]
     Indication: SCHIZOPHRENIA
  4. PERPHENAZINE [Concomitant]
     Indication: SCHIZOPHRENIA
  5. BENZHEXOL [Concomitant]
  6. BENZHEXOL [Concomitant]
     Indication: PROPHYLAXIS
  7. CHLORPROMAZINE [Concomitant]
     Indication: SCHIZOPHRENIA

REACTIONS (1)
  - FALL [None]
